FAERS Safety Report 13821949 (Version 2)
Quarter: 2017Q3

REPORT INFORMATION
  Report Type: Spontaneous
  Country: US (occurrence: US)
  Receive Date: 20170801
  Receipt Date: 20170929
  Transmission Date: 20171127
  Serious: Yes (Life-Threatening, Hospitalization, Other)
  Sender: FDA-Public Use
  Company Number: US-PFM-2017-06549

PATIENT

DRUGS (4)
  1. PROPRANOLOL HYDROCHLORIDE. [Suspect]
     Active Substance: PROPRANOLOL HYDROCHLORIDE
     Indication: HAEMANGIOMA OF LIVER
     Dosage: 3 MG/KG, UNK
     Route: 065
  2. VINCRISTINE [Suspect]
     Active Substance: VINCRISTINE
     Indication: HAEMANGIOMA OF LIVER
     Route: 065
  3. PROPRANOLOL HYDROCHLORIDE. [Suspect]
     Active Substance: PROPRANOLOL HYDROCHLORIDE
     Dosage: 5 MG/KG, UNK
  4. METHYLPREDNISOLONE. [Concomitant]
     Active Substance: METHYLPREDNISOLONE
     Indication: HAEMANGIOMA OF LIVER
     Dosage: 2 MG/KG, UNK

REACTIONS (11)
  - Pulmonary haemorrhage [Recovered/Resolved]
  - Acute kidney injury [Recovered/Resolved]
  - Hypothyroidism [Recovered/Resolved]
  - Intentional product use issue [Unknown]
  - Respiratory distress [Recovered/Resolved]
  - Disseminated intravascular coagulation [Recovered/Resolved]
  - Blood bilirubin increased [Recovered/Resolved]
  - Cardiac failure [Recovered/Resolved]
  - Drug administered to patient of inappropriate age [Unknown]
  - Condition aggravated [Recovered/Resolved]
  - Off label use [Unknown]
